FAERS Safety Report 23487086 (Version 7)
Quarter: 2024Q4

REPORT INFORMATION
  Report Type: Report from Study
  Country: AU (occurrence: AU)
  Receive Date: 20240206
  Receipt Date: 20241001
  Transmission Date: 20250115
  Serious: Yes (Life-Threatening, Hospitalization, Other)
  Sender: BAXTER
  Company Number: AU-BAXTER-2024BAX011916

PATIENT
  Age: 67 Year
  Sex: Male
  Weight: 78 kg

DRUGS (29)
  1. CYCLOPHOSPHAMIDE [Suspect]
     Active Substance: CYCLOPHOSPHAMIDE
     Indication: Diffuse large B-cell lymphoma stage III
     Dosage: 1522.5 MG, EVERY 3 WEEKS
     Route: 042
     Dates: start: 20231220, end: 20240205
  2. DOXORUBICIN [Suspect]
     Active Substance: DOXORUBICIN
     Indication: Diffuse large B-cell lymphoma stage III
     Dosage: 101.5 MG, EVERY 3 WEEKS
     Route: 042
     Dates: start: 20231220, end: 20240205
  3. EPCORITAMAB [Suspect]
     Active Substance: EPCORITAMAB
     Indication: Diffuse large B-cell lymphoma stage III
     Dosage: 0.16 MG PRIMING DOSE; C1, D1, TOTAL
     Route: 058
     Dates: start: 20231220, end: 20231220
  4. EPCORITAMAB [Suspect]
     Active Substance: EPCORITAMAB
     Dosage: 0.8 MG INTERMEDIATE DOSE; C1, D8, TOTAL
     Route: 058
     Dates: start: 20231227, end: 20231227
  5. EPCORITAMAB [Suspect]
     Active Substance: EPCORITAMAB
     Dosage: 48 MG FULL DOSE, C1D15, TOTAL
     Route: 058
     Dates: start: 20240103, end: 20240103
  6. EPCORITAMAB [Suspect]
     Active Substance: EPCORITAMAB
     Dosage: 48 MG FULL DOSE, C2D1, TOTAL
     Route: 058
     Dates: start: 20240110, end: 20240110
  7. EPCORITAMAB [Suspect]
     Active Substance: EPCORITAMAB
     Dosage: 48 MG, EVERY 1 WEEKS
     Route: 058
     Dates: start: 20240206, end: 20240206
  8. VINCRISTINE [Suspect]
     Active Substance: VINCRISTINE
     Indication: Diffuse large B-cell lymphoma stage III
     Dosage: 2 MG, EVERY 3 WEEKS
     Route: 042
     Dates: start: 20231220, end: 20240205
  9. RITUXIMAB [Suspect]
     Active Substance: RITUXIMAB
     Indication: Diffuse large B-cell lymphoma stage III
     Dosage: 761 MG, EVERY 3 WEEKS
     Route: 042
     Dates: start: 20231219, end: 20240205
  10. PREDNISONE [Suspect]
     Active Substance: PREDNISONE
     Indication: Diffuse large B-cell lymphoma stage III
     Dosage: 100 MG C1-6, DAY 1-5, EVERY 1 DAYS
     Route: 048
     Dates: start: 20231219, end: 20240205
  11. DULOXETINE [Concomitant]
     Active Substance: DULOXETINE
     Indication: Depression
     Dosage: 90 MG, EVERY 1 DAYS (START DATE: 2020)
     Route: 065
  12. OLMESARTAN [Concomitant]
     Active Substance: OLMESARTAN
     Indication: Hypertension
     Dosage: 40 MG, EVERY 1 DAY (START DATE: 1990)
     Route: 065
  13. LERCANIDIPINE [Concomitant]
     Active Substance: LERCANIDIPINE
     Indication: Hypertension
     Dosage: 20 MG, EVERY 1 DAYS (START DATE: 1990)
     Route: 065
  14. EZETIMIBE AND SIMVASTATIN [Concomitant]
     Active Substance: EZETIMIBE\SIMVASTATIN
     Indication: Dyslipidaemia
     Dosage: 10/80 MG, EVERY 1 DAYS (START SATE: 1990)
     Route: 065
  15. ESTRADERM [Concomitant]
     Active Substance: ESTRADIOL
     Indication: Gender reassignment therapy
     Dosage: 50 UG, 2/WEEKS
     Route: 065
     Dates: start: 20230901
  16. METOPROLOL [Concomitant]
     Active Substance: METOPROLOL
     Indication: Hypertension
     Dosage: 50 MG, 2/DAYS (START DATE: 1990)
     Route: 065
  17. ALBUTEROL [Concomitant]
     Active Substance: ALBUTEROL
     Indication: Myocardial ischaemia
     Dosage: 2 PUFF, AS NECESSARY (START DATE: 1993)
     Route: 065
  18. ALLOPURINOL [Concomitant]
     Active Substance: ALLOPURINOL
     Indication: Prophylaxis
     Dosage: 300 MG, EVERY 1 DAYS
     Route: 065
     Dates: start: 20230901
  19. VITAMINS [Concomitant]
     Active Substance: VITAMINS
     Indication: Vitamin supplementation
     Dosage: 1 DOSAGE FORM, EVERY 1 DAYS
     Route: 065
     Dates: start: 20230901
  20. ASPIRIN [Concomitant]
     Active Substance: ASPIRIN
     Indication: Myocardial ischaemia
     Dosage: 100 MG, EVERY 1 DAYS
     Route: 065
     Dates: start: 20231122
  21. THIAMINE [Concomitant]
     Active Substance: THIAMINE
     Indication: Vitamin supplementation
     Dosage: 100 MG, EVERY 1 DAYS
     Route: 065
     Dates: start: 20230901
  22. ACETAMINOPHEN [Concomitant]
     Active Substance: ACETAMINOPHEN
     Indication: Pain prophylaxis
     Dosage: 1000 MG, AS NECESSARY (START SATE: 1965)
     Route: 065
  23. OXYCODONE HYDROCHLORIDE [Concomitant]
     Active Substance: OXYCODONE HYDROCHLORIDE
     Indication: Abdominal pain
     Dosage: 10 MG, AS NECESSARY
     Route: 065
     Dates: start: 20230901
  24. NALOXONE HYDROCHLORIDE\OXYCODONE HYDROCHLORIDE [Concomitant]
     Active Substance: NALOXONE HYDROCHLORIDE\OXYCODONE HYDROCHLORIDE
     Indication: Abdominal pain
     Dosage: 10 MG, 2/DAYS
     Route: 065
     Dates: start: 20230901
  25. DEXAMETHASONE [Concomitant]
     Active Substance: DEXAMETHASONE
     Indication: Prophylaxis
     Dosage: 16 MG, EVERY 24 HOURS
     Route: 065
     Dates: start: 20240103
  26. FUROSEMIDE [Concomitant]
     Active Substance: FUROSEMIDE
     Indication: Diuretic therapy
     Dosage: 40 MG, 2/DAYS
     Route: 065
     Dates: start: 20240207, end: 20240208
  27. FUROSEMIDE [Concomitant]
     Active Substance: FUROSEMIDE
     Dosage: 40 MG, 2/DAYS
     Route: 065
     Dates: start: 20240209
  28. SODIUM PHOSPHATE, MONOBASIC [Concomitant]
     Active Substance: SODIUM PHOSPHATE, MONOBASIC
     Indication: Hypophosphataemia
     Dosage: 500 MG, 2/DAYS
     Route: 065
     Dates: start: 20240201
  29. ONDANSETRON [Concomitant]
     Active Substance: ONDANSETRON
     Indication: Prophylaxis of nausea and vomiting
     Dosage: 8 MG, AS NECESSARY
     Route: 065
     Dates: start: 20231219

REACTIONS (5)
  - Intestinal perforation [Recovered/Resolved with Sequelae]
  - Febrile neutropenia [Recovered/Resolved]
  - Pneumonia [Recovered/Resolved]
  - Hypotension [Recovered/Resolved]
  - Enteritis infectious [Recovered/Resolved]

NARRATIVE: CASE EVENT DATE: 20240116
